FAERS Safety Report 23680316 (Version 1)
Quarter: 2024Q1

REPORT INFORMATION
  Report Type: Spontaneous
  Country: US (occurrence: US)
  Receive Date: 20240328
  Receipt Date: 20240328
  Transmission Date: 20240410
  Serious: No
  Sender: FDA-Public Use
  Company Number: US-SA-SAC20240321000170

PATIENT
  Sex: Female
  Weight: 58.05 kg

DRUGS (9)
  1. DUPIXENT [Suspect]
     Active Substance: DUPILUMAB
     Indication: Neurodermatitis
     Dosage: 600 MG 1X
     Route: 058
  2. DUPIXENT [Suspect]
     Active Substance: DUPILUMAB
     Indication: Eczema nummular
  3. BUTALBITAL [Concomitant]
     Active Substance: BUTALBITAL
  4. RAMIPRIL [Concomitant]
     Active Substance: RAMIPRIL
  5. CLOBETASOL [Concomitant]
     Active Substance: CLOBETASOL
     Dosage: 5MG
  6. BETAMETHASONE DIPROPIONATE\CLOTRIMAZOLE [Concomitant]
     Active Substance: BETAMETHASONE DIPROPIONATE\CLOTRIMAZOLE
  7. FERROUS GLUCONATE [Concomitant]
     Active Substance: FERROUS GLUCONATE
  8. IBUPROFEN [Concomitant]
     Active Substance: IBUPROFEN
  9. PRAVASTATIN [Concomitant]
     Active Substance: PRAVASTATIN

REACTIONS (1)
  - Rash [Unknown]
